FAERS Safety Report 4746659-0 (Version None)
Quarter: 2005Q3

REPORT INFORMATION
  Report Type: 
  Country: None (occurrence: None)
  Receive Date: 20050817
  Receipt Date: 20050805
  Transmission Date: 20060218
  Serious: Yes (Hospitalization)
  Sender: FDA-Public Use
  Company Number: PHRM2005FR02236

PATIENT
  Age: 75 Year
  Sex: Male

DRUGS (10)
  1. NITRODERM [Suspect]
     Dosage: 5 MG/DAY
     Route: 062
     Dates: start: 20050701, end: 20050705
  2. TAREG [Concomitant]
     Dosage: 160 MG/DAY
     Route: 048
  3. PREVISCAN [Concomitant]
     Route: 048
  4. LEVOTHYROX [Concomitant]
     Dosage: 100 UG/DAY
     Route: 048
  5. LASIX [Concomitant]
     Dosage: 40 MG/DAY
     Route: 048
  6. CORDARONE [Concomitant]
     Dosage: 200 MG, QW5
     Route: 048
  7. IMOVANE [Concomitant]
     Dosage: 1 DF, QD
     Route: 048
  8. DIFFU K [Concomitant]
     Route: 048
  9. HUMALOG [Concomitant]
     Route: 058
  10. NOVOMIX [Concomitant]
     Route: 058

REACTIONS (2)
  - INFLAMMATION [None]
  - VASCULAR PURPURA [None]
